FAERS Safety Report 20519877 (Version 3)
Quarter: 2022Q1

REPORT INFORMATION
  Report Type: Spontaneous
  Country: AU (occurrence: AU)
  Receive Date: 20220225
  Receipt Date: 20220311
  Transmission Date: 20220424
  Serious: Yes (Other)
  Sender: FDA-Public Use
  Company Number: AU-ALLERGAN-2133081US

PATIENT
  Age: 64 Year
  Sex: Male
  Weight: 74 kg

DRUGS (7)
  1. ACITRETIN [Suspect]
     Active Substance: ACITRETIN
     Indication: Pityriasis rubra pilaris
     Dosage: 10-35MG QD
     Route: 065
  2. ACITRETIN [Suspect]
     Active Substance: ACITRETIN
     Dosage: 10-50 MG/DAY
     Route: 065
     Dates: start: 2010
  3. MOMETASONE FUROATE [Suspect]
     Active Substance: MOMETASONE FUROATE
     Indication: Pityriasis rubra pilaris
     Dosage: MOMETASONE: 0.10 %; ADDITIONAL INFO: OFF LABEL USE
     Route: 061
  4. METHOTREXATE [Suspect]
     Active Substance: METHOTREXATE
     Indication: Pityriasis rubra pilaris
     Dosage: 10 MG, Q WEEK
     Route: 065
     Dates: start: 2012
  5. ADALIMUMAB [Suspect]
     Active Substance: ADALIMUMAB
     Indication: Pityriasis rubra pilaris
     Dosage: 40MG/BW
     Route: 065
     Dates: start: 2012, end: 2013
  6. BETAMETHASONE VALERATE [Suspect]
     Active Substance: BETAMETHASONE VALERATE
     Indication: Pityriasis rubra pilaris
     Dosage: BETAMETHASONE VALERATE: 0.02 %; ADDITIONAL INFO: OFF LABEL USE
     Route: 061
  7. METHYLPREDNISOLONE ACEPONATE [Suspect]
     Active Substance: METHYLPREDNISOLONE ACEPONATE
     Indication: Pityriasis rubra pilaris
     Dosage: METHYLPREDNISOLONE ACEPONATE: 0.10 %; ADDITIONAL INFO: OFF LABEL USE
     Route: 061

REACTIONS (4)
  - Hepatitis [Unknown]
  - Polymyalgia rheumatica [Unknown]
  - Therapeutic product effect incomplete [Unknown]
  - Off label use [Unknown]
